FAERS Safety Report 25955657 (Version 1)
Quarter: 2025Q4

REPORT INFORMATION
  Report Type: Spontaneous
  Country: CA (occurrence: CA)
  Receive Date: 20251024
  Receipt Date: 20251024
  Transmission Date: 20260118
  Serious: Yes (Other)
  Sender: PHARMACOSMOS A/S
  Company Number: CA-NEBO-711212

PATIENT
  Sex: Female

DRUGS (1)
  1. MONOFERRIC [Suspect]
     Active Substance: FERRIC DERISOMALTOSE
     Indication: Product used for unknown indication

REACTIONS (2)
  - Bradycardia [Recovered/Resolved]
  - Maternal exposure during pregnancy [Recovered/Resolved]
